FAERS Safety Report 9596297 (Version 1)
Quarter: 2013Q4

REPORT INFORMATION
  Report Type: Spontaneous
  Country: US (occurrence: US)
  Receive Date: 20131004
  Receipt Date: 20131004
  Transmission Date: 20140711
  Serious: Yes (Hospitalization, Disabling, Other)
  Sender: FDA-Public Use
  Company Number: DE-ASTRAZENECA-2013SE71488

PATIENT
  Age: 35 Year
  Sex: Female

DRUGS (64)
  1. MOMETASONE FUROATE [Suspect]
  2. MUPIROCIN [Suspect]
  3. OSELTAMIVIR [Suspect]
  4. PERCOCET /00446701/ [Suspect]
  5. QUININE SULFATE [Suspect]
  6. RIZATRIPTAN BENZOATE [Suspect]
  7. ROFECOXIB [Suspect]
  8. SUCRALFATE [Suspect]
  9. BACTRIM DS [Suspect]
  10. TRAZODONE HCL [Suspect]
  11. TRIAMCINOLONE ACETONIDE [Suspect]
  12. TRIAZOLAM [Suspect]
     Dosage: UNK
  13. ATENOLOL [Suspect]
     Indication: HYPERTENSION
     Route: 048
  14. CANDESARTAN [Interacting]
     Route: 048
  15. ESOMEPRAZOLE [Interacting]
     Route: 048
  16. LISINOPRIL [Interacting]
     Route: 048
  17. OMEPRAZOLE [Interacting]
     Route: 048
  18. METOPROLOL [Interacting]
     Route: 048
  19. DIAZEPAM [Suspect]
  20. ALPRAZOLAM [Suspect]
  21. CLONAZEPAM [Suspect]
     Indication: MUSCLE SPASMS
  22. AMLODIPINE [Suspect]
  23. GABAPENTIN [Suspect]
     Dosage: UNK
  24. PREVACID [Suspect]
  25. CELECOXIB [Suspect]
  26. CLOTRIMAZOLE [Suspect]
  27. DICLOFENAC SODIUM [Suspect]
  28. ERYTHROMYCIN [Suspect]
  29. FLUCONAZOLE [Suspect]
  30. FLUOXETINE [Suspect]
  31. FLUTICASONE [Suspect]
  32. KETOCONAZOLE [Suspect]
  33. AVELOX [Suspect]
  34. OLMESARTAN [Suspect]
  35. TRAMADOL [Suspect]
  36. VERAPAMIL [Suspect]
  37. PETHIDINE HYDROCHLORIDE [Suspect]
  38. LASIX /00032601/ [Suspect]
  39. AMOXICILLIN SODIUM W/CLAVULANATE POTASSIUM [Suspect]
  40. ATROPINE SULFATE\DIFENOXIN HYDROCHLORIDE [Suspect]
     Dosage: UNK
  41. BETAMETHASONE DIPROPIONATE\CLOTRIMAZOLE [Suspect]
  42. ZEBETA [Suspect]
  43. BUPROPION HYDROCHLORIDE [Suspect]
  44. CARBIDOPA AND LEVODOPA [Suspect]
  45. CARISOPRODOL [Suspect]
  46. CEPHALEXIN [Suspect]
     Route: 048
  47. CEFAZOLIN SODIUM [Suspect]
  48. CETIRIZINE HCL [Suspect]
  49. PSEUDOEPHEDRINE+CHLORPHENIRAMINE [Suspect]
  50. ENDAL-HD [Suspect]
  51. DEXAMETHASONE [Suspect]
  52. ECONAZOLE NITRATE [Suspect]
  53. ALLEGRA-D [Suspect]
  54. FLUTICASONE W/SALMETEROL [Suspect]
  55. GUAIFENESIN\HYDROCODONE BITARTRATE [Suspect]
     Dosage: UNK
  56. EXGEST LA [Suspect]
     Dosage: UNK
  57. GUAIFENESIN (+) PSEUDOEPHEDRINE HYDROCHLORIDE [Suspect]
  58. ZYDONE [Suspect]
  59. LORTAB /00607101/ [Suspect]
  60. LORCET-HD [Suspect]
  61. LATANOPROST [Suspect]
  62. LOSARTAN POTASSIUM [Suspect]
  63. MELOXICAM [Suspect]
  64. METAXALONE [Suspect]

REACTIONS (24)
  - Drug interaction [Not Recovered/Not Resolved]
  - Deep vein thrombosis [Not Recovered/Not Resolved]
  - Arthritis [Not Recovered/Not Resolved]
  - Blood chloride decreased [Not Recovered/Not Resolved]
  - Blood cholesterol increased [Not Recovered/Not Resolved]
  - Bronchitis [Not Recovered/Not Resolved]
  - Cholelithiasis [Not Recovered/Not Resolved]
  - Glaucoma [Not Recovered/Not Resolved]
  - Neuropathy peripheral [Not Recovered/Not Resolved]
  - Osteoarthritis [Not Recovered/Not Resolved]
  - Phlebitis [Not Recovered/Not Resolved]
  - Purpura senile [Not Recovered/Not Resolved]
  - Resorption bone increased [Not Recovered/Not Resolved]
  - Tarsal tunnel syndrome [Not Recovered/Not Resolved]
  - Thrombophlebitis superficial [Not Recovered/Not Resolved]
  - Vasculitis [Not Recovered/Not Resolved]
  - Vertigo positional [Not Recovered/Not Resolved]
  - Vestibular disorder [Not Recovered/Not Resolved]
  - Blood alkaline phosphatase increased [Not Recovered/Not Resolved]
  - Renal failure [Not Recovered/Not Resolved]
  - Blood sodium decreased [Not Recovered/Not Resolved]
  - Alanine aminotransferase increased [Not Recovered/Not Resolved]
  - Aspartate aminotransferase increased [Not Recovered/Not Resolved]
  - Dizziness [Not Recovered/Not Resolved]
